FAERS Safety Report 5699270-1 (Version None)
Quarter: 2008Q2

REPORT INFORMATION
  Report Type: 
  Country: None (occurrence: None)
  Receive Date: 20080404
  Receipt Date: 20080324
  Transmission Date: 20081010
  Serious: Yes (Other)
  Sender: FDA-Public Use
  Company Number: CHPA2008US05272

PATIENT
  Age: 28 Year
  Sex: Male

DRUGS (1)
  1. EXCEDRIN (MIGRAINE) [Suspect]
     Indication: HEADACHE
     Dosage: 76 CAPLETS IN 5 DAYS, ORAL
     Route: 048
     Dates: start: 20080319

REACTIONS (4)
  - DYSPEPSIA [None]
  - NAUSEA [None]
  - OVERDOSE [None]
  - VOMITING [None]
